FAERS Safety Report 7865122-1 (Version None)
Quarter: 2011Q4

REPORT INFORMATION
  Report Type: 
  Country: None (occurrence: None)
  Receive Date: 20111028
  Receipt Date: 20101013
  Transmission Date: 20120403
  Serious: Yes (Hospitalization)
  Sender: FDA-Public Use
  Company Number: US-GLAXOSMITHKLINE-A0887488A

PATIENT
  Sex: Female

DRUGS (7)
  1. ADVAIR DISKUS 100/50 [Suspect]
     Indication: ASTHMA
     Dosage: 1PUFF TWICE PER DAY
     Route: 055
     Dates: start: 20100513
  2. ATIVAN [Concomitant]
  3. ASMANEX TWISTHALER [Concomitant]
  4. ALBUTEROL SULFATE [Concomitant]
  5. FLONASE [Concomitant]
  6. PROVENTIL [Concomitant]
  7. BUSPAR [Concomitant]

REACTIONS (2)
  - PNEUMONIA [None]
  - DYSPNOEA [None]
